FAERS Safety Report 5778464-0 (Version None)
Quarter: 2008Q2

REPORT INFORMATION
  Report Type: 
  Country: None (occurrence: None)
  Receive Date: 20080618
  Receipt Date: 20080618
  Transmission Date: 20081010
  Serious: Yes (Hospitalization)
  Sender: FDA-Public Use
  Company Number: None

PATIENT
  Age: 84 Year
  Sex: Male
  Weight: 113 kg

DRUGS (2)
  1. ENOXAPARIN SODIUM [Suspect]
     Dosage: 40 MG EVERY DAY SQ
     Route: 058
     Dates: start: 20080605, end: 20080614
  2. ASPIRIN [Suspect]
     Dosage: 325 MG EVERY DAY PO
     Route: 048
     Dates: start: 20080605, end: 20080614

REACTIONS (7)
  - DYSPNOEA [None]
  - GASTRIC HAEMORRHAGE [None]
  - HAEMATOCHEZIA [None]
  - HAEMOGLOBIN DECREASED [None]
  - HYPERHIDROSIS [None]
  - PALPITATIONS [None]
  - VENTRICULAR TACHYCARDIA [None]
